FAERS Safety Report 7229774-1 (Version None)
Quarter: 2011Q1

REPORT INFORMATION
  Report Type: 
  Country: None (occurrence: None)
  Receive Date: 20110117
  Receipt Date: 20110104
  Transmission Date: 20110831
  Serious: Yes (Other)
  Sender: FDA-Public Use
  Company Number: US-PFIZER INC-2010160807

PATIENT
  Sex: Male
  Weight: 77.098 kg

DRUGS (1)
  1. ALPRAZOLAM [Suspect]
     Indication: RESTLESS LEGS SYNDROME
     Dosage: UP TO 1MG, DAILY
     Route: 048

REACTIONS (5)
  - MUSCLE SPASMS [None]
  - HANGOVER [None]
  - FAECAL INCONTINENCE [None]
  - VISUAL IMPAIRMENT [None]
  - URINARY INCONTINENCE [None]
